FAERS Safety Report 5710249-3 (Version None)
Quarter: 2008Q2

REPORT INFORMATION
  Report Type: 
  Country: None (occurrence: None)
  Receive Date: 20080418
  Receipt Date: 20080411
  Transmission Date: 20081010
  Serious: Yes (Other)
  Sender: FDA-Public Use
  Company Number: FR-PFIZER INC-2008022269

PATIENT
  Sex: Male
  Weight: 70 kg

DRUGS (4)
  1. ATORVASTATIN CALCIUM [Suspect]
     Indication: HYPERCHOLESTEROLAEMIA
     Dates: start: 20080208, end: 20080215
  2. CARDENSIEL [Concomitant]
  3. IRBESARTAN [Concomitant]
  4. KARDEGIC [Concomitant]

REACTIONS (3)
  - HAEMATOMA [None]
  - OEDEMA [None]
  - PAIN IN EXTREMITY [None]
